FAERS Safety Report 18382683 (Version 1)
Quarter: 2020Q4

REPORT INFORMATION
  Report Type: Spontaneous
  Country: US (occurrence: US)
  Receive Date: 20201013
  Receipt Date: 20201013
  Transmission Date: 20210114
  Serious: Yes (Hospitalization)
  Sender: FDA-Public Use
  Company Number: None

PATIENT
  Sex: Female

DRUGS (9)
  1. ONDANSETRON [Suspect]
     Active Substance: ONDANSETRON
  2. CEFDINIR. [Suspect]
     Active Substance: CEFDINIR
  3. HUMIRA [Suspect]
     Active Substance: ADALIMUMAB
     Indication: CROHN^S DISEASE
     Dosage: ?          OTHER DOSE:1 SYR;?
     Route: 058
     Dates: start: 20160326
  4. SMZ/TMP DS [Suspect]
     Active Substance: SULFAMETHOXAZOLE\TRIMETHOPRIM
  5. METRONIDAZOL [Suspect]
     Active Substance: METRONIDAZOLE
  6. ZYRTEC ALLGY [Concomitant]
  7. QVAR AER [Concomitant]
  8. PROAIR HFA [Suspect]
     Active Substance: ALBUTEROL SULFATE
  9. CEPHALEXIN. [Suspect]
     Active Substance: CEPHALEXIN

REACTIONS (1)
  - Abscess [None]
